FAERS Safety Report 9044455 (Version 2)
Quarter: 2014Q1

REPORT INFORMATION
  Report Type: Spontaneous
  Country: US (occurrence: US)
  Receive Date: 20130131
  Receipt Date: 20140108
  Transmission Date: 20141002
  Serious: Yes (Hospitalization, Other)
  Sender: FDA-Public Use
  Company Number: US-AMGEN-USASP2012075243

PATIENT
  Age: 39 Year
  Sex: Female
  Weight: 56.23 kg

DRUGS (1)
  1. ENBREL [Suspect]
     Indication: RHEUMATOID ARTHRITIS
     Dosage: 50 MG, QWK
     Route: 058
     Dates: start: 20111118

REACTIONS (11)
  - Full blood count decreased [Recovered/Resolved]
  - Abdominal pain [Recovering/Resolving]
  - Cholecystectomy [Recovered/Resolved]
  - Haemoptysis [Recovering/Resolving]
  - Abdominal discomfort [Recovering/Resolving]
  - Acute respiratory failure [Unknown]
  - Pyrexia [Recovered/Resolved]
  - Sepsis [Unknown]
  - Vomiting [Unknown]
  - Joint swelling [Not Recovered/Not Resolved]
  - Anaemia [Unknown]
